FAERS Safety Report 17256061 (Version 1)
Quarter: 2020Q1

REPORT INFORMATION
  Report Type: Spontaneous
  Country: FR (occurrence: FR)
  Receive Date: 20200110
  Receipt Date: 20200110
  Transmission Date: 20200409
  Serious: Yes (Hospitalization)
  Sender: FDA-Public Use
  Company Number: FR-TEVA-2020-FR-1165405

PATIENT
  Age: 60 Year
  Sex: Male
  Weight: 76 kg

DRUGS (16)
  1. TAHOR [Concomitant]
     Active Substance: ATORVASTATIN CALCIUM
     Route: 048
  2. BISOPROLOL (HEMIFUMARATE DE) [Concomitant]
     Active Substance: BISOPROLOL FUMARATE
     Route: 048
  3. RAMIPRIL. [Suspect]
     Active Substance: RAMIPRIL
     Indication: PERIPHERAL ARTERIAL OCCLUSIVE DISEASE
     Dosage: 5MG PER DAY
     Route: 048
     Dates: end: 20191027
  4. BRILIQUE 90 MG, COMPRIME PELLICULE [Concomitant]
     Active Substance: TICAGRELOR
     Route: 048
  5. LANSOPRAZOLE. [Concomitant]
     Active Substance: LANSOPRAZOLE
     Route: 048
  6. JANUVIA [Concomitant]
     Active Substance: SITAGLIPTIN PHOSPHATE
     Route: 048
     Dates: end: 20191027
  7. LEVOTHYROX 100 MICROGRAMMES, COMPRIME SECABLE [Concomitant]
     Active Substance: LEVOTHYROXINE
     Route: 048
  8. LYRICA [Concomitant]
     Active Substance: PREGABALIN
     Route: 048
  9. SERESTA 10 MG, COMPRIME [Concomitant]
     Active Substance: OXAZEPAM
     Route: 048
  10. NOCTAMIDE 2 MG, COMPRIME SECABLE [Concomitant]
     Active Substance: LORMETAZEPAM
     Route: 048
  11. KARDEGIC [Concomitant]
     Active Substance: ASPIRIN DL-LYSINE
     Route: 048
  12. OLANZAPINE. [Concomitant]
     Active Substance: OLANZAPINE
     Route: 048
  13. AMAREL 4 MG, COMPRIME [Concomitant]
     Route: 048
     Dates: end: 20191027
  14. CYMBALTA [Concomitant]
     Active Substance: DULOXETINE HYDROCHLORIDE
     Route: 048
  15. STAGID 700 MG, COMPRIME SECABLE [Concomitant]
     Active Substance: METFORMIN PAMOATE
     Indication: TYPE 2 DIABETES MELLITUS
     Dosage: 1 DOSAGE FORM PER DAY
     Route: 048
     Dates: end: 20191027
  16. DOLIPRANE [Concomitant]
     Active Substance: ACETAMINOPHEN
     Route: 048

REACTIONS (2)
  - Acute kidney injury [Recovered/Resolved]
  - Circulatory collapse [Recovered/Resolved]

NARRATIVE: CASE EVENT DATE: 20191027
